FAERS Safety Report 7020966-3 (Version None)
Quarter: 2010Q3

REPORT INFORMATION
  Report Type: 
  Country: None (occurrence: None)
  Receive Date: 20100929
  Receipt Date: 20100920
  Transmission Date: 20110219
  Serious: Yes (Life-Threatening, Hospitalization, Other)
  Sender: FDA-Public Use
  Company Number: US-TEVA-249129USA

PATIENT
  Sex: Female

DRUGS (11)
  1. ESTRADIOL TABLETS, USP, 0.5 MG, 1 MG, 2 MG [Suspect]
  2. DILTIAZEM HYDROCHLORIDE [Suspect]
     Indication: BLOOD PRESSURE
     Route: 048
     Dates: start: 20081101, end: 20080101
  3. ENALAPRIL MALEATE [Suspect]
     Route: 048
  4. ENALAPRIL MALEATE [Suspect]
  5. OTHER MEDICATION NOS [Suspect]
     Indication: BLOOD PRESSURE
  6. FAMCICLOVIR [Concomitant]
  7. METHYLPREDNISOLONE [Concomitant]
  8. ACETAMINOPHEN W/ PROPOXYPHENE HCL [Concomitant]
     Dosage: 100/650MG
  9. ZOLPIDEM [Concomitant]
  10. METHYLPREDNISOLONE [Concomitant]
  11. VASTOD [Concomitant]

REACTIONS (35)
  - ABNORMAL FAECES [None]
  - ALOPECIA [None]
  - ANXIETY [None]
  - APHASIA [None]
  - ASTHENIA [None]
  - ATROPHY [None]
  - BLOOD ARSENIC INCREASED [None]
  - DEPRESSION [None]
  - DIARRHOEA [None]
  - DRY MOUTH [None]
  - DYSGEUSIA [None]
  - DYSGRAPHIA [None]
  - DYSPNOEA [None]
  - FACIAL SPASM [None]
  - FATIGUE [None]
  - GAIT DISTURBANCE [None]
  - HYPOAESTHESIA [None]
  - MALAISE [None]
  - METAL POISONING [None]
  - MOTOR DYSFUNCTION [None]
  - MUSCLE SPASMS [None]
  - MUSCLE TWITCHING [None]
  - MUSCULAR WEAKNESS [None]
  - NECK PAIN [None]
  - ONYCHOLYSIS [None]
  - PAIN [None]
  - PAIN IN EXTREMITY [None]
  - PARAESTHESIA [None]
  - POOR SUCKING REFLEX [None]
  - PRODUCT CONTAMINATION [None]
  - SENSORY LOSS [None]
  - SPEECH DISORDER [None]
  - STRESS [None]
  - TOOTH INJURY [None]
  - TREMOR [None]
